FAERS Safety Report 18916113 (Version 1)
Quarter: 2021Q1

REPORT INFORMATION
  Report Type: Spontaneous
  Country: CN (occurrence: CN)
  Receive Date: 20210218
  Receipt Date: 20210218
  Transmission Date: 20210420
  Serious: No
  Sender: FDA-Public Use
  Company Number: CN-ALKEM LABORATORIES LIMITED-CN-ALKEM-2020-03882

PATIENT
  Age: 10 Year
  Sex: Male

DRUGS (2)
  1. LINEZOLID. [Suspect]
     Active Substance: LINEZOLID
     Indication: OSTEOMYELITIS
     Dosage: 350 MILLIGRAM, TID
     Route: 042
  2. LINEZOLID. [Suspect]
     Active Substance: LINEZOLID
     Dosage: 350 MILLIGRAM, BID
     Route: 042

REACTIONS (3)
  - Tooth discolouration [Unknown]
  - Red blood cell count decreased [Recovered/Resolved]
  - Anaemia [Recovering/Resolving]
